FAERS Safety Report 6821322-0 (Version None)
Quarter: 2010Q3

REPORT INFORMATION
  Report Type: 
  Country: None (occurrence: None)
  Receive Date: 20100707
  Receipt Date: 20080714
  Transmission Date: 20110219
  Serious: No
  Sender: FDA-Public Use
  Company Number: US-PFIZER INC-2008059377

PATIENT
  Sex: Female
  Weight: 109.09 kg

DRUGS (3)
  1. ZOLOFT [Suspect]
     Indication: POSTPARTUM DEPRESSION
     Dates: start: 20050101
  2. DIOVANE [Concomitant]
     Indication: HYPERTENSION
  3. CONTRACEPTIVE, UNSPECIFIED [Concomitant]

REACTIONS (4)
  - ALOPECIA [None]
  - EMOTIONAL DISORDER [None]
  - HYPERHIDROSIS [None]
  - IRRITABILITY [None]
